FAERS Safety Report 4827431-X (Version None)
Quarter: 2005Q4

REPORT INFORMATION
  Report Type: 
  Country: None (occurrence: None)
  Receive Date: 20051110
  Receipt Date: 20051028
  Transmission Date: 20060501
  Serious: Yes (Other)
  Sender: FDA-Public Use
  Company Number: 12784

PATIENT
  Age: 39 Year
  Sex: Female

DRUGS (5)
  1. ACYCLOVIR [Suspect]
     Indication: ENCEPHALITIS HERPES
     Dosage: 1950 MG DAILY
     Dates: start: 20051007, end: 20051013
  2. CO-TRIMOXAZOLE [Concomitant]
  3. LORAZEPAM [Concomitant]
  4. VITAMIN E ACETATE [Concomitant]
  5. ASCORBIC ACID [Concomitant]

REACTIONS (2)
  - PSYCHOTIC DISORDER [None]
  - REFUSAL OF TREATMENT BY PATIENT [None]
